FAERS Safety Report 8773759 (Version 1)
Quarter: 2012Q4

REPORT INFORMATION
  Report Type: 
  Country: US (occurrence: US)
  Receive Date: 20120907
  Receipt Date: 20120907
  Transmission Date: 20130627
  Serious: Yes (Other)
  Sender: FDA-Public Use
  Company Number: US-FRI-1000038332

PATIENT
  Sex: Male

DRUGS (1)
  1. VIIBRYD [Suspect]

REACTIONS (1)
  - Suicidal ideation [Unknown]
